FAERS Safety Report 12256188 (Version 1)
Quarter: 2016Q2

REPORT INFORMATION
  Report Type: Spontaneous
  Country: US (occurrence: None)
  Receive Date: 20160411
  Receipt Date: 20160411
  Transmission Date: 20160815
  Serious: Yes (Other)
  Sender: FDA-Public Use
  Company Number: None

PATIENT
  Age: 20 Year
  Sex: Female
  Weight: 70.31 kg

DRUGS (1)
  1. CEFADROXIL. [Suspect]
     Active Substance: CEFADROXIL
     Indication: ACNE
     Route: 048
     Dates: start: 20150201, end: 20160202

REACTIONS (3)
  - Haematochezia [None]
  - Treatment noncompliance [None]
  - Abdominal pain upper [None]

NARRATIVE: CASE EVENT DATE: 20160201
